FAERS Safety Report 6726369-0 (Version None)
Quarter: 2010Q2

REPORT INFORMATION
  Report Type: 
  Country: None (occurrence: None)
  Receive Date: 20100514
  Receipt Date: 20100503
  Transmission Date: 20101027
  Serious: Yes (Congenital Anomaly)
  Sender: FDA-Public Use
  Company Number: A0859487A

PATIENT
  Sex: Female
  Weight: 3.3 kg

DRUGS (3)
  1. RETROVIR [Suspect]
     Indication: ANTIRETROVIRAL THERAPY
  2. KALETRA [Suspect]
     Indication: ANTIRETROVIRAL THERAPY
  3. TRUVADA [Suspect]
     Indication: ANTIRETROVIRAL THERAPY

REACTIONS (3)
  - CLINODACTYLY [None]
  - DRUG EXPOSURE DURING PREGNANCY [None]
  - FINGER DEFORMITY [None]
